FAERS Safety Report 23843705 (Version 1)
Quarter: 2024Q2

REPORT INFORMATION
  Report Type: Spontaneous
  Country: US (occurrence: US)
  Receive Date: 20240510
  Receipt Date: 20240510
  Transmission Date: 20240716
  Serious: Yes (Death)
  Sender: FDA-Public Use
  Company Number: US-JNJFOC-20240514342

PATIENT
  Age: 3 Year

DRUGS (1)
  1. BENADRYL [Suspect]
     Active Substance: DIPHENHYDRAMINE HYDROCHLORIDE
     Indication: Product used for unknown indication
     Dosage: 5,000 NG/ML
     Route: 065
     Dates: start: 202404

REACTIONS (5)
  - Poisoning deliberate [Fatal]
  - Intentional product misuse to child [Fatal]
  - Intentional overdose [Fatal]
  - Seizure [Fatal]
  - Unresponsive to stimuli [Fatal]

NARRATIVE: CASE EVENT DATE: 20240401
